FAERS Safety Report 13885727 (Version 2)
Quarter: 2017Q3

REPORT INFORMATION
  Report Type: Report from Study
  Country: None (occurrence: US)
  Receive Date: 20170821
  Receipt Date: 20170829
  Transmission Date: 20171127
  Serious: Yes (Other)
  Sender: FDA-Public Use
  Company Number: US-ABBVIE-17K-163-2076967-00

PATIENT
  Age: 33 Year
  Sex: Female

DRUGS (9)
  1. LYRICA [Concomitant]
     Active Substance: PREGABALIN
     Indication: NEURALGIA
  2. HUMIRA [Suspect]
     Active Substance: ADALIMUMAB
     Route: 058
     Dates: start: 201705
  3. HUMIRA [Suspect]
     Active Substance: ADALIMUMAB
     Route: 058
     Dates: start: 201608, end: 201705
  4. HUMIRA [Suspect]
     Active Substance: ADALIMUMAB
     Route: 058
     Dates: start: 201603, end: 201608
  5. NEXIUM [Concomitant]
     Active Substance: ESOMEPRAZOLE MAGNESIUM
     Indication: GASTROOESOPHAGEAL REFLUX DISEASE
  6. IRON [Suspect]
     Active Substance: IRON
     Indication: ANAEMIA
     Route: 065
  7. HUMIRA [Suspect]
     Active Substance: ADALIMUMAB
     Indication: UVEITIS
     Route: 058
     Dates: start: 2015, end: 201508
  8. LEXAPRO [Concomitant]
     Active Substance: ESCITALOPRAM OXALATE
     Indication: PRODUCT USED FOR UNKNOWN INDICATION
  9. METFORMIN [Concomitant]
     Active Substance: METFORMIN HYDROCHLORIDE
     Indication: POLYCYSTIC OVARIES

REACTIONS (16)
  - Hypotension [Recovered/Resolved]
  - Procedural pain [Not Recovered/Not Resolved]
  - Cervical incompetence [Unknown]
  - Uterine neoplasm [Recovered/Resolved]
  - Live birth [Unknown]
  - Premature delivery [Unknown]
  - Premature separation of placenta [Recovered/Resolved]
  - Postoperative wound infection [Recovered/Resolved]
  - Polycystic ovaries [Not Recovered/Not Resolved]
  - Impaired healing [Recovered/Resolved]
  - Ovarian cyst [Not Recovered/Not Resolved]
  - Vaginal haemorrhage [Recovered/Resolved]
  - Cervical dilatation [Recovered/Resolved]
  - Anaemia [Recovering/Resolving]
  - Constipation [Recovering/Resolving]
  - Exposure during pregnancy [Unknown]

NARRATIVE: CASE EVENT DATE: 201511
